FAERS Safety Report 7881132 (Version 2)
Quarter: 2012Q4

REPORT INFORMATION
  Report Type: 
  Country: VE (occurrence: VE)
  Receive Date: 20110401
  Receipt Date: 20121127
  Transmission Date: 20130627
  Serious: Yes (Hospitalization, Other)
  Sender: FDA-Public Use
  Company Number: PHHY2011VE24592

PATIENT
  Age: 11 Year
  Sex: Female

DRUGS (4)
  1. GLIVEC [Suspect]
     Indication: CHRONIC MYELOID LEUKAEMIA
     Dosage: 300 mg, QD
     Route: 048
     Dates: start: 20100501, end: 20110315
  2. GLIVEC [Suspect]
     Dosage: 300 mg, QD
     Route: 048
     Dates: start: 20110322, end: 20110415
  3. GLIVEC [Suspect]
     Dosage: 400 mg, QD
     Route: 048
     Dates: start: 20110415, end: 20110430
  4. GLIVEC [Suspect]
     Dosage: 300 mg, QD
     Route: 048
     Dates: start: 20110501

REACTIONS (7)
  - Renal disorder [Unknown]
  - White blood cell count increased [Unknown]
  - Diarrhoea [Not Recovered/Not Resolved]
  - Chronic myeloid leukaemia [Unknown]
  - Malignant neoplasm progression [Unknown]
  - Red blood cell abnormality [Unknown]
  - Vomiting [Not Recovered/Not Resolved]
